FAERS Safety Report 6680693-9 (Version None)
Quarter: 2010Q2

REPORT INFORMATION
  Report Type: 
  Country: None (occurrence: None)
  Receive Date: 20100414
  Receipt Date: 20100405
  Transmission Date: 20101027
  Serious: Yes (Hospitalization)
  Sender: FDA-Public Use
  Company Number: US-KINGPHARMUSA00001-K201000399

PATIENT
  Sex: Female
  Weight: 81.179 kg

DRUGS (1)
  1. FLECTOR [Suspect]
     Indication: BACK PAIN
     Dosage: 1 PATCH, SINGLE (FOR 24 HOURS)
     Route: 061
     Dates: start: 20100325, end: 20100326

REACTIONS (3)
  - CHEST PAIN [None]
  - GAIT DISTURBANCE [None]
  - MOTOR DYSFUNCTION [None]
